FAERS Safety Report 18279337 (Version 1)
Quarter: 2020Q3

REPORT INFORMATION
  Report Type: Spontaneous
  Country: SG (occurrence: SG)
  Receive Date: 20200917
  Receipt Date: 20200917
  Transmission Date: 20201103
  Serious: Yes (Other)
  Sender: FDA-Public Use
  Company Number: SG-ASTRAZENECA-2020SF17026

PATIENT
  Age: 60 Year
  Sex: Female

DRUGS (13)
  1. TAMOXIFEN [Suspect]
     Active Substance: TAMOXIFEN
     Route: 048
     Dates: start: 201004, end: 201305
  2. DOCETAXEL. [Concomitant]
     Active Substance: DOCETAXEL
  3. VINORELBINE [Concomitant]
     Active Substance: VINORELBINE TARTRATE
     Route: 048
     Dates: start: 20150709, end: 201601
  4. GOSERELIN [Concomitant]
     Active Substance: GOSERELIN
     Indication: MENOPAUSE
     Dates: start: 201602
  5. FULVESTRANT. [Suspect]
     Active Substance: FULVESTRANT
     Route: 030
     Dates: start: 201603
  6. CAPECITABINE. [Concomitant]
     Active Substance: CAPECITABINE
     Dates: end: 201308
  7. ERIBULIN [Concomitant]
     Active Substance: ERIBULIN
     Dates: start: 201308, end: 201402
  8. GEMCITABINE. [Concomitant]
     Active Substance: GEMCITABINE
     Dates: start: 201504, end: 201507
  9. PALBOCICLIB [Concomitant]
     Active Substance: PALBOCICLIB
     Dates: start: 201803
  10. LETROZOLE. [Concomitant]
     Active Substance: LETROZOLE
     Dates: start: 200902, end: 201004
  11. BEVACIZUMAB. [Concomitant]
     Active Substance: BEVACIZUMAB
  12. CARBOPLATIN. [Concomitant]
     Active Substance: CARBOPLATIN
     Dates: start: 201504, end: 201507
  13. LETROZOLE. [Concomitant]
     Active Substance: LETROZOLE
     Dates: start: 201405

REACTIONS (11)
  - Pneumonitis [Unknown]
  - Treatment noncompliance [Unknown]
  - Pleural effusion [Unknown]
  - Metastases to liver [Unknown]
  - Metastases to lung [Unknown]
  - Rash [Unknown]
  - Malignant neoplasm progression [Unknown]
  - Hot flush [Unknown]
  - Amenorrhoea [Unknown]
  - Dyspnoea exertional [Unknown]
  - Mood swings [Unknown]

NARRATIVE: CASE EVENT DATE: 201908
